FAERS Safety Report 10669884 (Version 2)
Quarter: 2015Q1

REPORT INFORMATION
  Report Type: Spontaneous
  Country: US (occurrence: US)
  Receive Date: 20141222
  Receipt Date: 20150109
  Transmission Date: 20150720
  Serious: No
  Sender: FDA-Public Use
  Company Number: US-009507513-1412USA008164

PATIENT
  Age: 22 Year
  Sex: Female
  Weight: 71.66 kg

DRUGS (2)
  1. IMPLANON [Suspect]
     Active Substance: ETONOGESTREL
     Indication: CONTRACEPTION
     Dosage: ONE ROD, STRENGTH 68 (UNITS NOR PROVIDED)
     Route: 059
     Dates: start: 20130415, end: 20141215
  2. PROPOFOL. [Concomitant]
     Active Substance: PROPOFOL

REACTIONS (1)
  - Unintended pregnancy [Not Recovered/Not Resolved]

NARRATIVE: CASE EVENT DATE: 20141124
